FAERS Safety Report 5734658-1 (Version None)
Quarter: 2008Q2

REPORT INFORMATION
  Report Type: 
  Country: None (occurrence: None)
  Receive Date: 20080508
  Receipt Date: 20080501
  Transmission Date: 20081010
  Serious: Yes (Life-Threatening, Disabling)
  Sender: FDA-Public Use
  Company Number: OSCN-PR-0803L-0162

PATIENT
  Age: 25 Year
  Sex: Female

DRUGS (6)
  1. OMNISCAN [Suspect]
     Indication: DRUG USE FOR UNKNOWN INDICATION
     Dosage: 12 ML, SINGLE DOSE, I.V; 15 ML, SINGLE DOSE, I.V., 10 ML (0.11 MMOL/KG), SINGLE DOSE, I.V.
     Route: 042
     Dates: start: 20060109, end: 20060109
  2. OMNISCAN [Suspect]
     Indication: DRUG USE FOR UNKNOWN INDICATION
     Dosage: 12 ML, SINGLE DOSE, I.V; 15 ML, SINGLE DOSE, I.V., 10 ML (0.11 MMOL/KG), SINGLE DOSE, I.V.
     Route: 042
     Dates: start: 20060720, end: 20060720
  3. OMNISCAN [Suspect]
     Indication: DRUG USE FOR UNKNOWN INDICATION
     Dosage: 12 ML, SINGLE DOSE, I.V; 15 ML, SINGLE DOSE, I.V., 10 ML (0.11 MMOL/KG), SINGLE DOSE, I.V.
     Route: 042
     Dates: start: 20060807, end: 20060807
  4. OMNISCAN [Suspect]
     Dosage: 15 ML (0.16 MMOL/KG), SINGLE DOSE, I.V.
     Route: 042
     Dates: start: 20060814, end: 20060814
  5. GADOLINIUM (UNSPECIFIED) [Concomitant]
  6. EPOGEN [Concomitant]

REACTIONS (3)
  - BACTERAEMIA [None]
  - CATHETER RELATED INFECTION [None]
  - NEPHROGENIC SYSTEMIC FIBROSIS [None]
